FAERS Safety Report 6277609-6 (Version None)
Quarter: 2009Q3

REPORT INFORMATION
  Report Type: 
  Country: None (occurrence: None)
  Receive Date: 20090722
  Receipt Date: 20090505
  Transmission Date: 20100115
  Serious: No
  Sender: FDA-Public Use
  Company Number: US-BAYER-200920166NA

PATIENT
  Age: 37 Year
  Sex: Female

DRUGS (1)
  1. YAZ [Suspect]
     Indication: IRRITABILITY
     Route: 048
     Dates: start: 20081201, end: 20090505

REACTIONS (2)
  - CHLOASMA [None]
  - NO ADVERSE EVENT [None]
